FAERS Safety Report 15137004 (Version 1)
Quarter: 2018Q3

REPORT INFORMATION
  Report Type: Spontaneous
  Country: US (occurrence: US)
  Receive Date: 20180712
  Receipt Date: 20180712
  Transmission Date: 20181010
  Serious: No
  Sender: FDA-Public Use
  Company Number: US-FOUNDATIONCONSUMERHC-2018-US-008284

PATIENT
  Age: 15 Year
  Sex: Female
  Weight: 73.48 kg

DRUGS (2)
  1. PLAN B ONE?STEP [Suspect]
     Active Substance: LEVONORGESTREL
     Indication: POST COITAL CONTRACEPTION
     Dosage: 1.5 MG
     Route: 048
     Dates: start: 20180510, end: 20180510
  2. ALBUTEROL INHALER [Concomitant]
     Active Substance: ALBUTEROL

REACTIONS (5)
  - Emotional disorder [Not Recovered/Not Resolved]
  - Headache [Not Recovered/Not Resolved]
  - Dysmenorrhoea [Not Recovered/Not Resolved]
  - Breast tenderness [Not Recovered/Not Resolved]
  - Dizziness [Recovered/Resolved]

NARRATIVE: CASE EVENT DATE: 20180511
